FAERS Safety Report 8192360-3 (Version None)
Quarter: 2012Q1

REPORT INFORMATION
  Report Type: 
  Country: None (occurrence: None)
  Receive Date: 20120308
  Receipt Date: 20120222
  Transmission Date: 20120608
  Serious: Yes (Other)
  Sender: FDA-Public Use
  Company Number: US-AMGEN-USASP2012012873

PATIENT
  Age: 62 Year
  Sex: Male
  Weight: 92.971 kg

DRUGS (8)
  1. ZOLOFT [Suspect]
     Indication: DEPRESSION
     Dosage: 200 MG, 2X/DAY
     Route: 048
  2. VIAGRA [Suspect]
     Dosage: 100 MG, AS NEEDED
     Route: 048
  3. ENBREL [Suspect]
     Indication: PRODUCT USED FOR UNKNOWN INDICATION
     Dosage: UNK
  4. CELEBREX [Suspect]
     Indication: RHEUMATOID ARTHRITIS
     Dosage: 200 MG, BID
     Route: 048
  5. ZOLOFT [Suspect]
     Indication: ANXIETY
  6. ATENOLOL [Concomitant]
     Dosage: 50 MG, DAILY
  7. PREDNISONE [Concomitant]
     Dosage: 3 MG, DAILY
  8. MAVIK [Concomitant]
     Dosage: 4 MG, DAILY

REACTIONS (1)
  - NEOPLASM MALIGNANT [None]
